FAERS Safety Report 7061515-3 (Version None)
Quarter: 2010Q4

REPORT INFORMATION
  Report Type: 
  Country: None (occurrence: None)
  Receive Date: 20101026
  Receipt Date: 20101015
  Transmission Date: 20110411
  Serious: Yes (Other)
  Sender: FDA-Public Use
  Company Number: BR-PFIZER INC-2010117410

PATIENT
  Age: 67 Year
  Sex: Female
  Weight: 45 kg

DRUGS (5)
  1. CHAMPIX [Suspect]
     Indication: TOBACCO ABUSE
     Dosage: UNK
     Route: 048
     Dates: start: 20100905
  2. CHAMPIX [Suspect]
     Dosage: 1 MG, 2X/DAY, EVERY 12 HOURS
     Route: 048
  3. CILOSTAZOL [Concomitant]
     Indication: ARTERIOSCLEROSIS
     Dosage: 100 MG, 2X/DAY
     Dates: start: 20100401
  4. LANSOPRAZOLE [Concomitant]
     Indication: GASTRIC DISORDER
     Dosage: 30 MG, 1X/DAY
     Dates: start: 20100401
  5. BROMOPRIDE [Concomitant]
     Indication: GASTRIC DISORDER
     Dosage: 10 MG, 3X/DAY

REACTIONS (3)
  - DENGUE FEVER [None]
  - DISSOCIATIVE FUGUE [None]
  - EUPHORIC MOOD [None]
